FAERS Safety Report 12527691 (Version 1)
Quarter: 2016Q3

REPORT INFORMATION
  Report Type: Spontaneous
  Country: US (occurrence: US)
  Receive Date: 20160705
  Receipt Date: 20160705
  Transmission Date: 20161109
  Serious: Yes (Death, Congenital Anomaly, Other)
  Sender: FDA-Public Use
  Company Number: PHEH2016US016586

PATIENT

DRUGS (1)
  1. ZOFRAN [Suspect]
     Active Substance: ONDANSETRON HYDROCHLORIDE
     Indication: FOETAL EXPOSURE DURING PREGNANCY
     Route: 064

REACTIONS (7)
  - Foetal exposure during pregnancy [Unknown]
  - Limb deformity [Unknown]
  - Congenital scoliosis [Unknown]
  - Death neonatal [Fatal]
  - Heart disease congenital [Unknown]
  - Neural tube defect [Unknown]
  - Single functional kidney [Unknown]
